FAERS Safety Report 24611159 (Version 1)
Quarter: 2024Q4

REPORT INFORMATION
  Report Type: Spontaneous
  Country: US (occurrence: US)
  Receive Date: 20241113
  Receipt Date: 20241113
  Transmission Date: 20250115
  Serious: Yes (Other)
  Sender: ACCORD
  Company Number: US-MLMSERVICE-20241031-PI241012-00077-3

PATIENT
  Sex: Female

DRUGS (4)
  1. CAPECITABINE [Suspect]
     Active Substance: CAPECITABINE
     Indication: Breast cancer metastatic
     Dosage: 1000 MG/M2 TWICE DAILY, ON 1-14 OF 21 DAY CYCLE
  2. CAPECITABINE [Suspect]
     Active Substance: CAPECITABINE
     Indication: Breast cancer metastatic
     Dosage: ESCALATED TO 1500 MG TWICE DAILY, GIVEN ON 1-14 OF  21 DAY CYCLE
  3. CAPECITABINE [Suspect]
     Active Substance: CAPECITABINE
     Indication: Breast cancer metastatic
     Dosage: BACK TO 1000 MG/M2 TWICE DAILY, ON 1-14 OF 21 DAY CYCLE
  4. CAPECITABINE [Suspect]
     Active Substance: CAPECITABINE
     Indication: Metastases to liver
     Dosage: 1000 MG/M2 TWICE DAILY, GIVEN ON 1-14 OF 21 DAY CYCLE

REACTIONS (5)
  - Palmar-plantar erythrodysaesthesia syndrome [Unknown]
  - Actinic keratosis [Unknown]
  - Skin papilloma [Unknown]
  - Squamous cell carcinoma of skin [Unknown]
  - Squamous cell carcinoma of the oral cavity [Unknown]
